FAERS Safety Report 6988315-4 (Version None)
Quarter: 2010Q3

REPORT INFORMATION
  Report Type: 
  Country: None (occurrence: None)
  Receive Date: 20100916
  Receipt Date: 20100907
  Transmission Date: 20110219
  Serious: Yes (Other)
  Sender: FDA-Public Use
  Company Number: GB-JNJFOC-20100903507

PATIENT
  Age: 65 Year
  Sex: Female

DRUGS (2)
  1. REMINYL XL [Suspect]
     Indication: PRODUCT USED FOR UNKNOWN INDICATION
     Route: 048
  2. REMINYL XL [Suspect]
     Route: 048

REACTIONS (1)
  - NEUTROPENIA [None]
